FAERS Safety Report 8388326-0 (Version None)
Quarter: 2012Q2

REPORT INFORMATION
  Report Type: 
  Country: None (occurrence: None)
  Receive Date: 20120525
  Receipt Date: 20120514
  Transmission Date: 20120825
  Serious: No
  Sender: FDA-Public Use
  Company Number: US-ASTRAZENECA-2012SE19493

PATIENT
  Age: 57 Year
  Sex: Female
  Weight: 72.6 kg

DRUGS (14)
  1. NEXIUM [Suspect]
     Indication: GASTROOESOPHAGEAL REFLUX DISEASE
     Route: 048
     Dates: start: 20111221
  2. PREMARIN [Concomitant]
  3. LORATADINE [Concomitant]
  4. MULTI-VITAMINS [Concomitant]
  5. CETIRIZINE HCL [Concomitant]
  6. ASPIRIN [Concomitant]
  7. CA WITH VIT B [Concomitant]
  8. PATANOL [Concomitant]
  9. FLONASE [Concomitant]
  10. CORGARD [Concomitant]
  11. LIPITOR [Concomitant]
     Indication: BLOOD CHOLESTEROL INCREASED
  12. NEXIUM [Suspect]
     Route: 048
  13. MINOCYCLINE HCL [Concomitant]
  14. CLARINEX [Concomitant]

REACTIONS (14)
  - DYSPEPSIA [None]
  - ABDOMINAL PAIN UPPER [None]
  - DIARRHOEA [None]
  - CHANGE OF BOWEL HABIT [None]
  - INTENTIONAL DRUG MISUSE [None]
  - OROPHARYNGEAL DISCOMFORT [None]
  - ERUCTATION [None]
  - DYSGEUSIA [None]
  - OFF LABEL USE [None]
  - CONSTIPATION [None]
  - CHEST DISCOMFORT [None]
  - PANIC ATTACK [None]
  - ARTHRALGIA [None]
  - HEADACHE [None]
